FAERS Safety Report 6891412-5 (Version None)
Quarter: 2010Q3

REPORT INFORMATION
  Report Type: 
  Country: None (occurrence: None)
  Receive Date: 20100731
  Receipt Date: 20070716
  Transmission Date: 20110219
  Serious: No
  Sender: FDA-Public Use
  Company Number: US-PFIZER INC-2007060584

PATIENT
  Sex: Female

DRUGS (2)
  1. NORVASC [Suspect]
  2. HYPOTEARS DDPF [Concomitant]

REACTIONS (1)
  - HEART RATE DECREASED [None]
